FAERS Safety Report 9262523 (Version 1)
Quarter: 2013Q2

REPORT INFORMATION
  Report Type: Report from Study
  Country: GB (occurrence: GB)
  Receive Date: 20130430
  Receipt Date: 20130430
  Transmission Date: 20140414
  Serious: Yes (Death)
  Sender: FDA-Public Use
  Company Number: GB-CELGENEUS-167-C4047-11114108

PATIENT
  Age: 81 Year
  Sex: Male
  Weight: 55 kg

DRUGS (23)
  1. CC-4047 [Suspect]
     Indication: PLASMA CELL MYELOMA
     Route: 048
     Dates: end: 201106
  2. PHENYTON [Concomitant]
     Indication: EPILEPSY
     Dosage: 225/250 MG
     Route: 065
  3. OMEPRAZOLE [Concomitant]
     Indication: PROPHYLAXIS
     Dosage: 20 MILLIGRAM
     Route: 048
  4. SENNA [Concomitant]
     Indication: CONSTIPATION
     Dosage: 15 MILLIGRAM
     Route: 048
  5. AMITIPTYLINE [Concomitant]
     Indication: PAIN IN EXTREMITY
     Dosage: 10 MILLIGRAM
     Route: 065
     Dates: start: 20110531, end: 20110607
  6. AMITIPTYLINE [Concomitant]
     Dosage: 10 MILLIGRAM
     Route: 065
     Dates: start: 20110522, end: 20110524
  7. FLUCONAZOLE [Concomitant]
     Indication: CANDIDA INFECTION
     Route: 048
     Dates: start: 20110605, end: 20110607
  8. MAGNESIUM HYDROXIDE [Concomitant]
     Indication: CONSTIPATION
     Dosage: 20 MILLILITER
     Route: 065
     Dates: start: 20110520
  9. ADCAL [Concomitant]
     Indication: PRODUCT USED FOR UNKNOWN INDICATION
     Dosage: 1 TABLET
     Route: 065
  10. DIFFLAM [Concomitant]
     Indication: ORAL CANDIDIASIS
     Dosage: 30 MILLILITER
     Route: 048
     Dates: start: 20110531, end: 20110608
  11. METOCLOPRAMIDE [Concomitant]
     Indication: NAUSEA
     Dosage: 30 MILLIGRAM
     Route: 048
     Dates: start: 20110602, end: 20110608
  12. PAMIDRONATE [Concomitant]
     Indication: PROPHYLAXIS
     Dosage: 90 MILLIGRAM
     Route: 065
     Dates: start: 20110406, end: 20110406
  13. PAMIDRONATE [Concomitant]
     Dosage: 30 MILLIGRAM
     Route: 065
     Dates: start: 20110408, end: 20110408
  14. TAZOCIN [Concomitant]
     Indication: URINARY TRACT INFECTION
     Route: 041
     Dates: start: 20110408, end: 20110415
  15. TAZOCIN [Concomitant]
     Indication: LOWER RESPIRATORY TRACT INFECTION
     Dosage: 13.5 GRAM
     Route: 041
     Dates: start: 20110513, end: 20110524
  16. CIPROFLOXACIN [Concomitant]
     Indication: URINARY TRACT INFECTION
     Dosage: 1500 MILLIGRAM
     Route: 065
     Dates: start: 20110415, end: 20110416
  17. CEPHALEXIN [Concomitant]
     Indication: URINARY TRACT INFECTION
     Dosage: 250 MILLIGRAM
     Route: 048
     Dates: start: 20110406, end: 20110411
  18. MEPTAZINOL [Concomitant]
     Indication: PAIN IN EXTREMITY
     Dosage: 20 MILLIGRAM
     Route: 048
     Dates: start: 20110406, end: 20110414
  19. MEPTAZINOL [Concomitant]
     Dosage: 800 MILLIGRAM
     Route: 048
     Dates: start: 20110512, end: 20110517
  20. OXYNORM [Concomitant]
     Indication: PAIN IN EXTREMITY
     Dosage: 5 MILLIGRAM
     Route: 065
     Dates: start: 20110516, end: 20110525
  21. UNSPECIFIED INGREDIENT [Concomitant]
     Indication: CONSTIPATION
     Dosage: 1 APPLICATION
     Route: 054
     Dates: start: 20110513, end: 20110513
  22. PARACETAMOL [Concomitant]
     Indication: PAIN IN EXTREMITY
     Route: 065
     Dates: start: 20110521
  23. NYSTATIN [Concomitant]
     Indication: ORAL CANDIDIASIS
     Dosage: 4 MILLILITER
     Route: 048
     Dates: start: 20110531, end: 20110605

REACTIONS (1)
  - Plasma cell myeloma [Fatal]
